FAERS Safety Report 15776499 (Version 1)
Quarter: 2018Q4

REPORT INFORMATION
  Report Type: Spontaneous
  Country: US (occurrence: US)
  Receive Date: 20181207
  Receipt Date: 20181207
  Transmission Date: 20190205
  Serious: Yes (Death)
  Sender: FDA-Public Use
  Company Number: None

PATIENT
  Age: 50 Year
  Sex: Female

DRUGS (1)
  1. OPSUMIT [Suspect]
     Active Substance: MACITENTAN
     Route: 048
     Dates: start: 20161212, end: 20181204

REACTIONS (5)
  - Pulmonary arterial hypertension [None]
  - Pneumonia [None]
  - Multiple organ dysfunction syndrome [None]
  - Sepsis [None]
  - Cardiac failure [None]

NARRATIVE: CASE EVENT DATE: 20181204
